FAERS Safety Report 9506634 (Version 1)
Quarter: 2013Q1

REPORT INFORMATION
  Report Type: Spontaneous
  Country: US (occurrence: None)
  Receive Date: 20130305
  Receipt Date: 20130305
  Transmission Date: 20140127
  Serious: Yes (Hospitalization)
  Sender: FDA-Public Use
  Company Number: 163-21880-12030245

PATIENT
  Age: 83 Year
  Sex: Female
  Weight: 76.2 kg

DRUGS (18)
  1. REVLIMID [Suspect]
     Indication: MYELOFIBROSIS
     Dosage: 10 MG, DAILY X 21 DAYS, PO
     Route: 048
     Dates: start: 20120124
  2. REVLIMID [Suspect]
     Indication: MYELODYSPLASTIC SYNDROME
     Dosage: 10 MG, DAILY X 21 DAYS, PO
     Route: 048
     Dates: start: 20120124
  3. FUROSEMIDE (FUROSEMIDE) (UNKNOWN) [Concomitant]
  4. ALBUTEROL (SALBUTAMOL) (UNKNOWN) [Concomitant]
  5. COLACE (DOCUSATE SODIUM) (UNKNOWN) [Concomitant]
  6. COREG (CARVEDILOL) (UNKNOWN) [Concomitant]
  7. COUMADIN (WARFARIN SODIUM) (UNKNOWN) [Concomitant]
  8. FOLIC ACID (FOLIC ACID) (UNKNOWN) [Concomitant]
  9. IRON [Concomitant]
  10. LIPITOR (ATORVASTATIN) (UNKNOWN) [Concomitant]
  11. PREDNISONE (PREDNISONE) (UNKNOWN) [Concomitant]
  12. QVAR (BECLOMETASONE DIPROPIONATE) (UNKNOWN) [Concomitant]
  13. REVATIO (SILDENAFIL CITRATE) (UNKNOWN) (SILDENAFIL) [Concomitant]
  14. SPIRIVA (TIOTROPIUM BROMIDE) (UNKNOWN) [Concomitant]
  15. SYNTHROID (LEVOTHYROXINE SODIUM) (UNKNOWN) [Concomitant]
  16. TOPROL XL (METOPROLOL SUCCINATE) (UNKNOWN) [Concomitant]
  17. TYLENOL (PARACETAMOL) (UNKNOWN) [Concomitant]
  18. VITAMIN D (ERGOCALCIFEROL) (UNKNOWN) [Concomitant]

REACTIONS (5)
  - Urinary tract infection [None]
  - Dyspnoea [None]
  - Dizziness [None]
  - Dysuria [None]
  - Fatigue [None]
